FAERS Safety Report 9029196 (Version 2)
Quarter: 2014Q4

REPORT INFORMATION
  Report Type: Spontaneous
  Country: ES (occurrence: ES)
  Receive Date: 20130125
  Receipt Date: 20141007
  Transmission Date: 20150529
  Serious: Yes (Other)
  Sender: FDA-Public Use
  Company Number: ES-JNJFOC-20130109545

PATIENT
  Age: 42 Year
  Sex: Female
  Weight: 65 kg

DRUGS (3)
  1. NORVIR [Interacting]
     Active Substance: RITONAVIR
     Indication: HIV INFECTION
     Route: 065
  2. FLUTICASONE [Interacting]
     Active Substance: FLUTICASONE\FLUTICASONE PROPIONATE
     Indication: ASTHMA
     Route: 065
     Dates: start: 201105, end: 201209
  3. PREZISTA [Suspect]
     Active Substance: DARUNAVIR ETHANOLATE
     Indication: HIV INFECTION
     Route: 048

REACTIONS (2)
  - Cushing^s syndrome [Recovered/Resolved]
  - Drug interaction [Recovered/Resolved]

NARRATIVE: CASE EVENT DATE: 201202
